FAERS Safety Report 13518634 (Version 1)
Quarter: 2017Q2

REPORT INFORMATION
  Report Type: Report from Study
  Country: HU (occurrence: HU)
  Receive Date: 20170505
  Receipt Date: 20170505
  Transmission Date: 20170830
  Serious: Yes (Hospitalization)
  Sender: FDA-Public Use
  Company Number: HU-JNJFOC-20170429845

PATIENT
  Sex: Male
  Weight: 116 kg

DRUGS (4)
  1. AMLODIPINE MALEATE [Concomitant]
     Active Substance: AMLODIPINE MALEATE
     Route: 065
     Dates: start: 201306
  2. STELARA [Suspect]
     Active Substance: USTEKINUMAB
     Indication: PSORIASIS
     Route: 058
     Dates: start: 20160519, end: 20161208
  3. COVEREX AS KOMB [Concomitant]
     Dosage: 10/2.5 MG ONCE A DAY
     Route: 065
     Dates: start: 201306
  4. MILURIT [Concomitant]
     Active Substance: ALLOPURINOL
     Route: 065
     Dates: start: 2010

REACTIONS (1)
  - Prostate cancer [Not Recovered/Not Resolved]
